FAERS Safety Report 4870473-9 (Version None)
Quarter: 2005Q4

REPORT INFORMATION
  Report Type: 
  Country: None (occurrence: None)
  Receive Date: 20051228
  Receipt Date: 20051216
  Transmission Date: 20060501
  Serious: Yes (Disabling, Other)
  Sender: FDA-Public Use
  Company Number: 2005167750

PATIENT
  Age: 61 Year
  Sex: Male
  Weight: 96.1626 kg

DRUGS (9)
  1. NORVASC [Suspect]
     Indication: BLOOD PRESSURE
     Dosage: 2.5 MG (2.5 MG, 1 IN 1 D), ORAL; SEE IMAGE
     Route: 048
     Dates: start: 19940801
  2. NORVASC [Suspect]
     Indication: BLOOD PRESSURE
     Dosage: 2.5 MG (2.5 MG, 1 IN 1 D), ORAL; SEE IMAGE
     Route: 048
     Dates: start: 20000101
  3. NEURONTIN [Suspect]
     Indication: ILL-DEFINED DISORDER
     Dosage: 300 MG, INTERVAL: EVERY DAY, ORAL
     Route: 048
     Dates: start: 20030101, end: 20050101
  4. DAYPRO [Suspect]
     Indication: RHEUMATOID ARTHRITIS
     Dosage: 1200 MG (600 MG, BID INTEVAL: EVERY DAY), ORAL
     Route: 048
     Dates: start: 19940901
  5. ZANTAC [Concomitant]
  6. SEREVENT [Concomitant]
  7. FLOMAX ^CHIESI^ (MORNIFLUMATE) [Concomitant]
  8. FLOVENT [Concomitant]
  9. PAXIL (PAROXETINE HYHDROCHLORIDE) [Concomitant]

REACTIONS (7)
  - ACCIDENT AT WORK [None]
  - BACK INJURY [None]
  - BLOOD PRESSURE INCREASED [None]
  - CHEST PAIN [None]
  - CORONARY ARTERY OCCLUSION [None]
  - PNEUMONIA [None]
  - RHEUMATOID ARTHRITIS [None]
